FAERS Safety Report 4559135-5 (Version None)
Quarter: 2005Q1

REPORT INFORMATION
  Report Type: 
  Country: None (occurrence: None)
  Receive Date: 20050121
  Receipt Date: 20050121
  Transmission Date: 20050727
  Serious: No
  Sender: FDA-Public Use
  Company Number: None

PATIENT
  Sex: Female

DRUGS (5)
  1. WARFARIN [Suspect]
     Indication: ATRIAL FIBRILLATION
  2. CRANBERRY JUICE [Suspect]
     Dosage: 1 TUMBLER PER DAY PO
     Route: 048
  3. DIGOXIN [Concomitant]
  4. THYROXINE [Concomitant]
  5. BENDROFLUAZIDE [Concomitant]

REACTIONS (1)
  - INTERNATIONAL NORMALISED RATIO DECREASED [None]
